FAERS Safety Report 17717057 (Version 1)
Quarter: 2020Q2

REPORT INFORMATION
  Report Type: Spontaneous
  Country: US (occurrence: US)
  Receive Date: 20200428
  Receipt Date: 20200428
  Transmission Date: 20200714
  Serious: No
  Sender: FDA-Public Use
  Company Number: US-SA-2020SA105946

PATIENT
  Age: 55 Year
  Sex: Female

DRUGS (2)
  1. LEVOFLOXACIN. [Concomitant]
     Active Substance: LEVOFLOXACIN
     Dosage: UNK
     Dates: start: 20200415
  2. DUPIXENT [Suspect]
     Active Substance: DUPILUMAB
     Indication: ASTHMA
     Dosage: 1 DF
     Dates: start: 20200415, end: 20200415

REACTIONS (2)
  - Arthralgia [Unknown]
  - Chest pain [Unknown]

NARRATIVE: CASE EVENT DATE: 20200419
